FAERS Safety Report 15739436 (Version 2)
Quarter: 2018Q4

REPORT INFORMATION
  Report Type: Report from Study
  Country: FR (occurrence: FR)
  Receive Date: 20181219
  Receipt Date: 20181227
  Transmission Date: 20190205
  Serious: Yes (Hospitalization)
  Sender: FDA-Public Use
  Company Number: FR-ROCHE-2229604

PATIENT
  Age: 69 Year
  Sex: Female
  Weight: 64 kg

DRUGS (20)
  1. OROCAL (FRANCE) [Concomitant]
     Indication: OSTEOPOROSIS
     Route: 048
  2. LEVOTHYROX [Concomitant]
     Active Substance: LEVOTHYROXINE
     Indication: HYPOTHYROIDISM
     Route: 048
     Dates: start: 2004
  3. XARELTO [Concomitant]
     Active Substance: RIVAROXABAN
     Indication: ATRIAL FIBRILLATION
     Route: 048
     Dates: start: 20180901
  4. SMECTA [Concomitant]
     Active Substance: MONTMORILLONITE
     Indication: DIARRHOEA
     Dosage: DOSE: 1 (UNIT: OTHER)
     Route: 048
     Dates: start: 20180917
  5. DIPROSONE [Concomitant]
     Active Substance: BETAMETHASONE DIPROPIONATE
     Indication: RASH
     Dosage: DOSE: 1 (UNIT: OTHER)
     Route: 061
     Dates: start: 20181001
  6. LARMES ARTIFICIELLES [Concomitant]
     Indication: DRY EYE
     Dosage: DOSE: 1 (UNIT: OTHER)
     Route: 047
     Dates: start: 20180921
  7. PRIMPERAN [Concomitant]
     Active Substance: METOCLOPRAMIDE HYDROCHLORIDE
     Indication: NAUSEA
     Route: 048
     Dates: start: 20180917
  8. SPASFON (FRANCE) [Concomitant]
     Active Substance: PHLOROGLUCINOL\1,3,5-TRIMETHOXYBENZENE
     Indication: ABDOMINAL PAIN
     Route: 048
     Dates: start: 20180917
  9. LANSOPRAZOLE. [Concomitant]
     Active Substance: LANSOPRAZOLE
     Indication: PROPHYLAXIS
     Route: 060
     Dates: start: 20180831
  10. AUREOMYCINE [Concomitant]
     Indication: RASH
     Dosage: AUREMYCINE POMMADE 3%
     Route: 065
     Dates: start: 201811, end: 20181126
  11. COBIMETINIB. [Suspect]
     Active Substance: COBIMETINIB
     Indication: MALIGNANT MELANOMA
     Dosage: FREQUENCY: ONCE DAILY ON A 21 DAYS, 7 DAYS OFF SCHEDULE (AS PER PROTOCOL)?DATE OF MOST RECENT DOSE O
     Route: 048
     Dates: start: 20180803
  12. CALCIUM CARBONATE. [Concomitant]
     Active Substance: CALCIUM CARBONATE
     Indication: OSTEOPOROSIS
     Route: 048
     Dates: start: 20180901
  13. FUCIDINE [Concomitant]
     Indication: PURPURA
     Route: 061
     Dates: start: 20181126
  14. DEXERYL (FRANCE) [Concomitant]
     Active Substance: GLYCERIN\MINERAL OIL\PETROLATUM
     Indication: DRY SKIN
     Dosage: DOSE: 1 (UNIT: OTHER)
     Route: 061
     Dates: start: 20180917
  15. MACROGOL [Concomitant]
     Active Substance: POLYETHYLENE GLYCOLS
     Indication: CONSTIPATION
     Route: 048
     Dates: start: 20181001
  16. SIMVASTATINE [Concomitant]
     Active Substance: SIMVASTATIN
     Indication: DYSLIPIDAEMIA
     Route: 048
  17. MYCOSTER [Concomitant]
     Active Substance: CICLOPIROX\CICLOPIROX OLAMINE
     Indication: STOMATITIS
     Dosage: DOSE: OTHER
     Route: 061
     Dates: start: 20180822
  18. AMLOR [Concomitant]
     Active Substance: AMLODIPINE BESYLATE
     Indication: ATRIAL FIBRILLATION
     Route: 048
     Dates: start: 20180918
  19. BISOPROLOL [Concomitant]
     Active Substance: BISOPROLOL
     Indication: ATRIAL FIBRILLATION
     Route: 048
     Dates: start: 20181016
  20. ATEZOLIZUMAB. [Suspect]
     Active Substance: ATEZOLIZUMAB
     Indication: MALIGNANT MELANOMA
     Dosage: DATE OF MOST RECENT DOSE OF ATEZOLIZUMAB 840 MG PRIOR TO SAE (SUSPICION OF MYOCARDIAL INFARCTION) ON
     Route: 042
     Dates: start: 20180803

REACTIONS (1)
  - Myocarditis [Unknown]

NARRATIVE: CASE EVENT DATE: 20181210
